FAERS Safety Report 22038765 (Version 2)
Quarter: 2023Q2

REPORT INFORMATION
  Report Type: Report from Study
  Country: US (occurrence: US)
  Receive Date: 20230227
  Receipt Date: 20230411
  Transmission Date: 20230721
  Serious: No
  Sender: FDA-Public Use
  Company Number: US-ABBVIE-4318062

PATIENT
  Age: 85 Year
  Sex: Male
  Weight: 79.378 kg

DRUGS (4)
  1. CREON [Suspect]
     Active Substance: PANCRELIPASE AMYLASE\PANCRELIPASE LIPASE\PANCRELIPASE PROTEASE
     Indication: Pancreatic failure
     Dosage: 36000 IU (INTERNATIONAL UNIT),  FREQUENCY TEXT: 2 CAPS/MEAL2 3X DAY
     Route: 048
     Dates: start: 202201
  2. CREON [Suspect]
     Active Substance: PANCRELIPASE AMYLASE\PANCRELIPASE LIPASE\PANCRELIPASE PROTEASE
     Indication: Pancreatic failure
     Dosage: 36000 IU (INTERNATIONAL UNIT),  FREQUENCY TEXT: 2 CAPS/MEAL2 3X DAY
     Route: 048
  3. ATORVASTATIN [Concomitant]
     Active Substance: ATORVASTATIN
     Indication: Product used for unknown indication
  4. DLI-LOPERAMIDE HYDROCHLORIDE [Concomitant]
     Indication: Diarrhoea

REACTIONS (1)
  - Diarrhoea [Not Recovered/Not Resolved]

NARRATIVE: CASE EVENT DATE: 20230101
